FAERS Safety Report 8565503-7 (Version None)
Quarter: 2012Q3

REPORT INFORMATION
  Report Type: 
  Country: None (occurrence: None)
  Receive Date: 20120803
  Receipt Date: 20120727
  Transmission Date: 20120928
  Serious: Yes (Death, Other)
  Sender: FDA-Public Use
  Company Number: MX-SANOFI-AVENTIS-2012SA053626

PATIENT
  Age: 41 Year
  Sex: Female
  Weight: 55 kg

DRUGS (3)
  1. LANTUS [Suspect]
     Indication: TYPE 2 DIABETES MELLITUS
     Route: 058
     Dates: start: 20110101, end: 20110826
  2. METFORMIN HCL [Concomitant]
     Route: 065
     Dates: start: 20030101, end: 20110101
  3. GLYBURIDE [Concomitant]
     Indication: TYPE 2 DIABETES MELLITUS
     Route: 065
     Dates: start: 20030101, end: 20110101

REACTIONS (3)
  - PERICARDIAL EFFUSION [None]
  - MYOCARDIAL INFARCTION [None]
  - HYPERGLYCAEMIA [None]
